FAERS Safety Report 5709013-0 (Version None)
Quarter: 2008Q2

REPORT INFORMATION
  Report Type: 
  Country: None (occurrence: None)
  Receive Date: 20080418
  Receipt Date: 20080404
  Transmission Date: 20081010
  Serious: Yes (Other)
  Sender: FDA-Public Use
  Company Number: US-BAYER-200811556NA

PATIENT
  Age: 49 Year
  Sex: Male

DRUGS (3)
  1. AVELOX [Suspect]
     Indication: PHARYNGOLARYNGEAL PAIN
     Route: 048
  2. DIOVAN [Concomitant]
     Indication: HYPERTENSION
  3. CRESTOR [Concomitant]
     Indication: BLOOD CHOLESTEROL INCREASED

REACTIONS (4)
  - ANAPHYLACTIC REACTION [None]
  - BLOOD PRESSURE DECREASED [None]
  - PHARYNGEAL OEDEMA [None]
  - SYNCOPE [None]
